FAERS Safety Report 16154425 (Version 1)
Quarter: 2019Q2

REPORT INFORMATION
  Report Type: Spontaneous
  Country: HU (occurrence: HU)
  Receive Date: 20190403
  Receipt Date: 20190403
  Transmission Date: 20190711
  Serious: Yes (Other)
  Sender: FDA-Public Use
  Company Number: HU-ACCORD-117713

PATIENT
  Sex: Male

DRUGS (2)
  1. CISPLATIN. [Suspect]
     Active Substance: CISPLATIN
     Indication: BLADDER TRANSITIONAL CELL CARCINOMA
     Dosage: 40 MG/M2, UNK
     Route: 065
  2. LIPIODOL [Concomitant]
     Active Substance: ETHIODIZED OIL
     Indication: PRODUCT USED FOR UNKNOWN INDICATION
     Dosage: 10 ML, UNK
     Route: 065

REACTIONS (3)
  - Liver function test increased [Recovered/Resolved]
  - Renal impairment [Recovered/Resolved]
  - Anaemia [Recovered/Resolved]
